FAERS Safety Report 8483259-3 (Version None)
Quarter: 2012Q3

REPORT INFORMATION
  Report Type: 
  Country: None (occurrence: None)
  Receive Date: 20120702
  Receipt Date: 20120621
  Transmission Date: 20120928
  Serious: Yes (Other)
  Sender: FDA-Public Use
  Company Number: FR-ALLERGAN-1208028US

PATIENT
  Age: 83 Year
  Sex: Female

DRUGS (6)
  1. OPTIVE [Suspect]
     Indication: EYE IRRITATION
     Dosage: 1 TO 2 DROPS IN EACH EYE UP TO 4 TIMES DAILY
     Route: 047
     Dates: start: 20120201
  2. METHOTREXATE [Concomitant]
     Indication: RHEUMATOID ARTHRITIS
     Dosage: UNK
  3. NAPROXEN [Concomitant]
     Indication: ANTIINFLAMMATORY THERAPY
  4. ENBREL [Concomitant]
     Indication: RHEUMATOID ARTHRITIS
  5. OPTIVE [Suspect]
     Indication: KERATITIS
  6. EURONAC [Concomitant]
     Indication: CORNEAL DISORDER
     Dosage: UNK
     Route: 047
     Dates: start: 20120201

REACTIONS (1)
  - CORNEAL PERFORATION [None]
